FAERS Safety Report 21615644 (Version 1)
Quarter: 2022Q4

REPORT INFORMATION
  Report Type: Spontaneous
  Country: BR (occurrence: BR)
  Receive Date: 20221118
  Receipt Date: 20221118
  Transmission Date: 20230112
  Serious: Yes (Other)
  Sender: FDA-Public Use
  Company Number: BR-PFIZER INC-202201306589

PATIENT
  Sex: Male

DRUGS (1)
  1. DEPO-MEDROL [Suspect]
     Active Substance: METHYLPREDNISOLONE ACETATE
     Dosage: INFILTRATION WITH DEPO-MEDROL IN THE SPINE

REACTIONS (13)
  - Hypoaesthesia [Unknown]
  - Cerebrovascular accident [Unknown]
  - Loss of consciousness [Unknown]
  - Dysarthria [Unknown]
  - Crying [Unknown]
  - Hiccups [Unknown]
  - Feeling cold [Unknown]
  - Night sweats [Unknown]
  - Panic attack [Unknown]
  - Feeling abnormal [Unknown]
  - Panic reaction [Unknown]
  - Anxiety [Unknown]
  - Agitation [Unknown]

NARRATIVE: CASE EVENT DATE: 20221019
